FAERS Safety Report 22295000 (Version 1)
Quarter: 2023Q2

REPORT INFORMATION
  Report Type: Spontaneous
  Country: US (occurrence: None)
  Receive Date: 20230505
  Receipt Date: 20230505
  Transmission Date: 20230721
  Serious: Yes (Hospitalization)
  Sender: FDA-Public Use
  Company Number: None

PATIENT
  Sex: Female

DRUGS (1)
  1. INREBIC [Suspect]
     Active Substance: FEDRATINIB HYDROCHLORIDE
     Dosage: FREQUENCY : DAILY;?
     Route: 048
     Dates: start: 20210924

REACTIONS (5)
  - Haematoma [None]
  - Localised infection [None]
  - Internal haemorrhage [None]
  - Drug interaction [None]
  - Seizure [None]
